FAERS Safety Report 23341637 (Version 1)
Quarter: 2023Q4

REPORT INFORMATION
  Report Type: Spontaneous
  Country: KR (occurrence: KR)
  Receive Date: 20231227
  Receipt Date: 20231227
  Transmission Date: 20240110
  Serious: Yes (Other)
  Sender: FDA-Public Use
  Company Number: KR-GLAXOSMITHKLINE-KR2023APC178347

PATIENT

DRUGS (1)
  1. ANORO ELLIPTA [Suspect]
     Active Substance: UMECLIDINIUM BROMIDE\VILANTEROL TRIFENATATE
     Indication: Product used for unknown indication
     Dosage: UNK (62.5)

REACTIONS (10)
  - Blindness transient [Recovering/Resolving]
  - Dry mouth [Unknown]
  - Abnormal sensation in eye [Unknown]
  - Feeling abnormal [Unknown]
  - Eye irritation [Unknown]
  - Inflammation [Unknown]
  - Erysipelas [Unknown]
  - Intraocular pressure increased [Unknown]
  - Contraindicated product prescribed [Unknown]
  - Contraindicated product administered [Unknown]
